FAERS Safety Report 9337406 (Version 5)
Quarter: 2014Q1

REPORT INFORMATION
  Report Type: Spontaneous
  Country: AR (occurrence: AR)
  Receive Date: 20130607
  Receipt Date: 20140204
  Transmission Date: 20141002
  Serious: Yes (Other)
  Sender: FDA-Public Use
  Company Number: AR-AMGEN-ARGSP2013040345

PATIENT
  Age: 53 Year
  Sex: Male

DRUGS (4)
  1. ENBREL [Suspect]
     Indication: RHEUMATOID ARTHRITIS
     Dosage: 50 MG, WEEKLY
     Route: 065
     Dates: start: 20100318, end: 2012
  2. DELTISONA B                        /00049601/ [Concomitant]
     Indication: PNEUMONIA
     Dosage: 8 MG, 1X/DAY
  3. NAPROXEN [Concomitant]
     Dosage: 500 MG, AS NECESSARY
  4. OMEPRAZOLE [Concomitant]
     Dosage: UNK

REACTIONS (4)
  - Pneumothorax [Not Recovered/Not Resolved]
  - Pulmonary oedema [Not Recovered/Not Resolved]
  - Pneumothorax [Not Recovered/Not Resolved]
  - Pneumonia [Not Recovered/Not Resolved]
